FAERS Safety Report 13129217 (Version 1)
Quarter: 2017Q1

REPORT INFORMATION
  Report Type: Report from Study
  Country: CN (occurrence: CN)
  Receive Date: 20170119
  Receipt Date: 20170119
  Transmission Date: 20170428
  Serious: Yes (Other)
  Sender: FDA-Public Use
  Company Number: CN-SUN PHARMACEUTICAL INDUSTRIES LTD-2017RR-131494

PATIENT
  Age: 61 Year
  Sex: Male

DRUGS (2)
  1. CEFUROXIME. [Suspect]
     Active Substance: CEFUROXIME
     Indication: URINARY TRACT INFECTION
     Dosage: UNK
     Route: 042
  2. CEFRADINE [Suspect]
     Active Substance: CEPHRADINE
     Indication: URINARY TRACT INFECTION
     Dosage: UNK
     Route: 048

REACTIONS (1)
  - Multiple-drug resistance [Unknown]
